FAERS Safety Report 10558957 (Version 2)
Quarter: 2014Q4

REPORT INFORMATION
  Report Type: Spontaneous
  Country: JP (occurrence: JP)
  Receive Date: 20141102
  Receipt Date: 20141121
  Transmission Date: 20150529
  Serious: Yes (Other)
  Sender: FDA-Public Use
  Company Number: JP-BRISTOL-MYERS SQUIBB COMPANY-21551221

PATIENT
  Age: 76 Year
  Sex: Male

DRUGS (5)
  1. GEMZAR [Suspect]
     Active Substance: GEMCITABINE HYDROCHLORIDE
     Indication: LYMPHOMA
  2. PARAPLATIN INJ 150 MG [Suspect]
     Active Substance: CARBOPLATIN
     Indication: LYMPHOMA
     Route: 041
  3. DEXAMETHASONE. [Suspect]
     Active Substance: DEXAMETHASONE
     Indication: LYMPHOMA
     Route: 041
  4. VEPESID [Suspect]
     Active Substance: ETOPOSIDE
     Indication: LYMPHOMA
     Route: 041
  5. IFOSFAMIDE. [Suspect]
     Active Substance: IFOSFAMIDE
     Indication: LYMPHOMA
     Route: 041

REACTIONS (1)
  - Haemolytic uraemic syndrome [Unknown]
